FAERS Safety Report 12394934 (Version 2)
Quarter: 2017Q1

REPORT INFORMATION
  Report Type: Report from Study
  Country: None (occurrence: DE)
  Receive Date: 20160523
  Receipt Date: 20170213
  Transmission Date: 20170428
  Serious: Yes (Hospitalization)
  Sender: FDA-Public Use
  Company Number: DE-ABBVIE-16K-062-1628915-00

PATIENT
  Age: 44 Year
  Sex: Female

DRUGS (1)
  1. HUMIRA [Suspect]
     Active Substance: ADALIMUMAB
     Indication: PRODUCT USED FOR UNKNOWN INDICATION
     Route: 058
     Dates: start: 20160414, end: 20160414

REACTIONS (4)
  - Hypoaesthesia [Recovering/Resolving]
  - Arthralgia [Recovering/Resolving]
  - Musculoskeletal disorder [Recovering/Resolving]
  - Vocal cord paralysis [Recovering/Resolving]

NARRATIVE: CASE EVENT DATE: 20160415
